FAERS Safety Report 24875080 (Version 1)
Quarter: 2025Q1

REPORT INFORMATION
  Report Type: Other
  Country: DK (occurrence: DK)
  Receive Date: 20250122
  Receipt Date: 20250122
  Transmission Date: 20250409
  Serious: Yes (Other)
  Sender: B BRAUN
  Company Number: DK-B.Braun Medical Inc.-2169551

PATIENT
  Age: 77 Year
  Sex: Female

DRUGS (11)
  1. SODIUM CHLORIDE [Suspect]
     Active Substance: SODIUM CHLORIDE
     Indication: C-reactive protein increased
  2. LEFLUNOMIDE [Concomitant]
     Active Substance: LEFLUNOMIDE
  3. ZOLEDRONIC ACID [Concomitant]
     Active Substance: ZOLEDRONIC ACID
  4. SULFASALAZINE [Concomitant]
     Active Substance: SULFASALAZINE
  5. INFLIXIMAB [Concomitant]
     Active Substance: INFLIXIMAB
  6. METHOTREXATE [Concomitant]
     Active Substance: METHOTREXATE
  7. CLARITHROMYCIN [Concomitant]
     Active Substance: CLARITHROMYCIN
  8. PIPERACILLIN SODIUM\TAZOBACTAM SODIUM [Concomitant]
     Active Substance: PIPERACILLIN SODIUM\TAZOBACTAM SODIUM
  9. AMDINOCILLIN PIVOXIL [Concomitant]
     Active Substance: AMDINOCILLIN PIVOXIL
  10. PREDNISOLONE [Concomitant]
     Active Substance: PREDNISOLONE
  11. BETAMETHASONE [Concomitant]
     Active Substance: BETAMETHASONE

REACTIONS (1)
  - Drug ineffective [Unknown]
